FAERS Safety Report 10308632 (Version 1)
Quarter: 2014Q3

REPORT INFORMATION
  Report Type: Spontaneous
  Country: CN (occurrence: CN)
  Receive Date: 20140716
  Receipt Date: 20140716
  Transmission Date: 20150326
  Serious: Yes (Other)
  Sender: FDA-Public Use
  Company Number: CN-GILEAD-2014-0108657

PATIENT
  Sex: Male
  Weight: 70 kg

DRUGS (3)
  1. HEPSERA [Suspect]
     Active Substance: ADEFOVIR DIPIVOXIL
     Indication: HEPATITIS B
     Dosage: 1TAB PER DAY
     Route: 048
     Dates: start: 2005
  2. INTERFERON NOS [Concomitant]
     Active Substance: INTERFERON
     Indication: HEPATITIS
     Route: 065
  3. TCM (CHINESE MEDICATION) [Concomitant]
     Indication: HEPATITIS
     Route: 065

REACTIONS (3)
  - Product taste abnormal [Unknown]
  - Diabetes mellitus [Recovering/Resolving]
  - Product quality issue [Unknown]
